FAERS Safety Report 5585032-2 (Version None)
Quarter: 2008Q1

REPORT INFORMATION
  Report Type: 
  Country: None (occurrence: None)
  Receive Date: 20080109
  Receipt Date: 20080104
  Transmission Date: 20080703
  Serious: Yes (Hospitalization)
  Sender: FDA-Public Use
  Company Number: US-JNJFOC-20080100912

PATIENT
  Sex: Female
  Weight: 122.47 kg

DRUGS (3)
  1. INVEGA [Suspect]
     Indication: BIPOLAR I DISORDER
  2. ENBREL [Concomitant]
     Indication: RHEUMATOID ARTHRITIS
  3. KLONOPIN [Concomitant]
     Indication: AFFECTIVE DISORDER
     Route: 048

REACTIONS (4)
  - ABNORMAL BEHAVIOUR [None]
  - BLOOD PROLACTIN INCREASED [None]
  - CONFUSIONAL STATE [None]
  - SOMNOLENCE [None]
